FAERS Safety Report 24209460 (Version 2)
Quarter: 2025Q3

REPORT INFORMATION
  Report Type: Report from Study
  Country: US (occurrence: US)
  Receive Date: 20240814
  Receipt Date: 20250723
  Transmission Date: 20251020
  Serious: Yes (Hospitalization, Other)
  Sender: AURINIA PHARMACEUTICALS
  Company Number: US-OTSUKA PHARMACEUTICAL NETHERLANDS B.V.-AUR-006416

PATIENT
  Age: 36 Year
  Sex: Female

DRUGS (5)
  1. LUPKYNIS [Suspect]
     Active Substance: VOCLOSPORIN
     Indication: Lupus nephritis
     Dosage: 23.7 MILLIGRAM, BID
     Route: 048
     Dates: start: 20240111
  2. LUPKYNIS [Suspect]
     Active Substance: VOCLOSPORIN
     Dosage: 3 CAPSULES BY MOUTH TWICE DAILY
     Route: 048
     Dates: start: 20240701
  3. PREDNISONE [Concomitant]
     Active Substance: PREDNISONE
     Indication: Product used for unknown indication
     Dosage: 10 MILLIGRAM, QD
  4. SAPHNELO [Concomitant]
     Active Substance: ANIFROLUMAB-FNIA
     Indication: Product used for unknown indication
  5. BENLYSTA [Concomitant]
     Active Substance: BELIMUMAB
     Indication: Product used for unknown indication

REACTIONS (6)
  - Urine protein/creatinine ratio increased [Not Recovered/Not Resolved]
  - Abortion spontaneous [Unknown]
  - Pleural effusion [Not Recovered/Not Resolved]
  - Proteinuria [Recovering/Resolving]
  - Lethargy [Unknown]
  - Maternal exposure during pregnancy [Unknown]

NARRATIVE: CASE EVENT DATE: 20240712
